FAERS Safety Report 17688890 (Version 1)
Quarter: 2020Q2

REPORT INFORMATION
  Report Type: Spontaneous
  Country: US (occurrence: US)
  Receive Date: 20200420
  Receipt Date: 20200420
  Transmission Date: 20200714
  Serious: No
  Sender: FDA-Public Use
  Company Number: None

PATIENT
  Age: 67 Year
  Sex: Female
  Weight: 68.04 kg

DRUGS (1)
  1. ALENDRONATE SODIUM. [Suspect]
     Active Substance: ALENDRONATE SODIUM
     Indication: OSTEOPOROSIS
     Dosage: ?          QUANTITY:12;?
     Route: 048
     Dates: start: 20200306, end: 20200312

REACTIONS (3)
  - Pain [None]
  - Arthralgia [None]
  - Spinal pain [None]

NARRATIVE: CASE EVENT DATE: 20200312
